FAERS Safety Report 17026114 (Version 1)
Quarter: 2019Q4

REPORT INFORMATION
  Report Type: Spontaneous
  Country: US (occurrence: US)
  Receive Date: 20191009
  Receipt Date: 20191009
  Transmission Date: 20200122
  Serious: Yes (Hospitalization)
  Sender: FDA-Public Use
  Company Number: None

PATIENT
  Age: 59 Year
  Sex: Female

DRUGS (1)
  1. COSENTYX [Suspect]
     Active Substance: SECUKINUMAB
     Indication: PALMOPLANTAR PUSTULOSIS
     Route: 058
     Dates: start: 20190618, end: 20190909

REACTIONS (2)
  - Surgery [None]
  - Treatment noncompliance [None]

NARRATIVE: CASE EVENT DATE: 20191008
